FAERS Safety Report 14712787 (Version 1)
Quarter: 2018Q2

REPORT INFORMATION
  Report Type: Spontaneous
  Country: AU (occurrence: AU)
  Receive Date: 20180404
  Receipt Date: 20180404
  Transmission Date: 20180711
  Serious: Yes (Other)
  Sender: FDA-Public Use
  Company Number: AU-ASTRAZENECA-2018SE22229

PATIENT
  Age: 24105 Day
  Sex: Female
  Weight: 86.2 kg

DRUGS (9)
  1. BYDUREON [Suspect]
     Active Substance: EXENATIDE
     Indication: TYPE 2 DIABETES MELLITUS
     Dosage: ONCE A WEEK
     Route: 058
     Dates: start: 20171130, end: 20180131
  2. SEREPAX [Concomitant]
     Active Substance: OXAZEPAM
     Route: 048
  3. CELECOXIB. [Suspect]
     Active Substance: CELECOXIB
     Route: 048
  4. DIABEX [Concomitant]
     Active Substance: METFORMIN HYDROCHLORIDE
  5. EXFORGE [Concomitant]
     Active Substance: AMLODIPINE BESYLATE\VALSARTAN
  6. ATACAND [Concomitant]
     Active Substance: CANDESARTAN CILEXETIL
  7. DIAMICRON [Concomitant]
     Active Substance: GLICLAZIDE
  8. PRAVACHOL [Concomitant]
     Active Substance: PRAVASTATIN SODIUM
  9. JANUVIA [Concomitant]
     Active Substance: SITAGLIPTIN PHOSPHATE

REACTIONS (5)
  - Insomnia [Recovered/Resolved]
  - Nausea [Unknown]
  - Injection site mass [Recovering/Resolving]
  - Confusional state [Recovered/Resolved]
  - Alopecia [Recovered/Resolved]

NARRATIVE: CASE EVENT DATE: 20171130
